FAERS Safety Report 4950627-3 (Version None)
Quarter: 2006Q1

REPORT INFORMATION
  Report Type: 
  Country: None (occurrence: None)
  Receive Date: 20060321
  Receipt Date: 20060321
  Transmission Date: 20060701
  Serious: Yes (Other)
  Sender: FDA-Public Use
  Company Number: None

PATIENT
  Sex: Female
  Weight: 14.0615 kg

DRUGS (1)
  1. ELIDEL [Suspect]
     Indication: HEAT RASH
     Dosage: 2-3X/DAY TOP
     Route: 061
     Dates: start: 20030308, end: 20030401

REACTIONS (1)
  - SKIN CANCER [None]
